FAERS Safety Report 8084307 (Version 2)
Quarter: 2013Q1

REPORT INFORMATION
  Report Type: Spontaneous
  Country: US (occurrence: US)
  Receive Date: 20110810
  Receipt Date: 20130320
  Transmission Date: 20140127
  Serious: Yes (Hospitalization)
  Sender: FDA-Public Use
  Company Number: US-GLAXOSMITHKLINE-A0903570A

PATIENT
  Age: 52 Year
  Sex: Male

DRUGS (1)
  1. AVANDIA [Suspect]
     Indication: DIABETES MELLITUS
     Dosage: 4MG PER DAY
     Route: 048
     Dates: start: 20070502, end: 200904

REACTIONS (6)
  - Atrial fibrillation [Recovering/Resolving]
  - Supraventricular tachycardia [Unknown]
  - Chest pain [Unknown]
  - Cardiac enzymes increased [Unknown]
  - Surgery [Unknown]
  - Catheterisation cardiac [Unknown]
